FAERS Safety Report 21494919 (Version 1)
Quarter: 2022Q4

REPORT INFORMATION
  Report Type: Spontaneous
  Country: US (occurrence: US)
  Receive Date: 20221022
  Receipt Date: 20221022
  Transmission Date: 20230112
  Serious: No
  Sender: FDA-Public Use
  Company Number: US-CELLTRION INC.-2022US009110

PATIENT

DRUGS (8)
  1. INFLECTRA [Suspect]
     Active Substance: INFLIXIMAB-DYYB
     Indication: Sarcoidosis
     Dosage: ONE LOADING DOSE
  2. MYCOPHENOLIC ACID [Concomitant]
     Active Substance: MYCOPHENOLIC ACID
     Dosage: 500MG;TOTAL DOSE 2000 MG A DAY
  3. AZATHIOPRINE [Concomitant]
     Active Substance: AZATHIOPRINE
     Dosage: 75MG 3 TIMES A DAY
  4. PREGABALIN [Concomitant]
     Active Substance: PREGABALIN
     Dosage: 50MG 3 TIMES A DAY
  5. DULOXETINE [Concomitant]
     Active Substance: DULOXETINE
     Dosage: 50MG TWICE A DAY
  6. FAMOTIDINE [Concomitant]
     Active Substance: FAMOTIDINE
     Dosage: 20MG TWICE A DAY
  7. METOPROLOL [Concomitant]
     Active Substance: METOPROLOL
     Dosage: 50MG ONCE A DAY
  8. PREDNISONE [Concomitant]
     Active Substance: PREDNISONE
     Dosage: 40 MG A DAY

REACTIONS (5)
  - Feeling abnormal [Unknown]
  - Unevaluable event [Unknown]
  - Influenza [Unknown]
  - Fatigue [Unknown]
  - Off label use [Unknown]
